FAERS Safety Report 11242660 (Version 1)
Quarter: 2015Q3

REPORT INFORMATION
  Report Type: Spontaneous
  Country: IT (occurrence: None)
  Receive Date: 20150702
  Receipt Date: 20150702
  Transmission Date: 20151125
  Serious: Yes (Hospitalization, Other)
  Sender: FDA-Public Use
  Company Number: ADR-2015-01236

PATIENT
  Age: 36 Year
  Sex: Male

DRUGS (2)
  1. BACLOFEN. [Suspect]
     Active Substance: BACLOFEN
     Indication: ALCOHOLISM
  2. DIAZEPAM. [Suspect]
     Active Substance: DIAZEPAM

REACTIONS (5)
  - Toxicity to various agents [None]
  - Lethargy [None]
  - Stupor [None]
  - Off label use [None]
  - Drug abuse [None]
